FAERS Safety Report 18888823 (Version 1)
Quarter: 2021Q1

REPORT INFORMATION
  Report Type: Spontaneous
  Country: US (occurrence: US)
  Receive Date: 20210212
  Receipt Date: 20210212
  Transmission Date: 20210420
  Serious: No
  Sender: FDA-Public Use
  Company Number: US-GE HEALTHCARE LIFE SCIENCES-2020CSU006802

PATIENT
  Age: 59 Year
  Sex: Male

DRUGS (2)
  1. OMNIPAQUE [Suspect]
     Active Substance: IOHEXOL
     Indication: ABDOMINAL PAIN
  2. OMNIPAQUE [Suspect]
     Active Substance: IOHEXOL
     Indication: COMPUTERISED TOMOGRAM
     Dosage: 1000 ML, SINGLE
     Route: 048
     Dates: start: 20201229, end: 20201229

REACTIONS (2)
  - Diarrhoea [Recovering/Resolving]
  - Accidental overdose [Recovering/Resolving]

NARRATIVE: CASE EVENT DATE: 20201229
